FAERS Safety Report 10178183 (Version 1)
Quarter: 2014Q2

REPORT INFORMATION
  Report Type: Spontaneous
  Country: US (occurrence: US)
  Receive Date: 20140519
  Receipt Date: 20140519
  Transmission Date: 20141212
  Serious: Yes (Other)
  Sender: FDA-Public Use
  Company Number: US-JNJFOC-20140502966

PATIENT
  Age: 67 Year
  Sex: Female
  Weight: 145.15 kg

DRUGS (24)
  1. LEVOFLOXACIN [Suspect]
     Indication: SINUSITIS
     Route: 048
     Dates: start: 20140323, end: 20140401
  2. LEVOFLOXACIN [Suspect]
     Indication: SINUSITIS
     Route: 048
     Dates: start: 20140409, end: 20140418
  3. TRAZODONE [Concomitant]
     Indication: SLEEP DISORDER THERAPY
     Route: 048
     Dates: start: 201312
  4. LORAZEPAM [Concomitant]
     Indication: ANXIETY
     Dosage: TWICE DAILY AS NEEDED
     Route: 048
     Dates: start: 201312
  5. VITAMIN C [Concomitant]
     Indication: GASTRIC BYPASS
     Route: 048
     Dates: start: 2003
  6. IRON [Concomitant]
     Indication: GASTRIC BYPASS
     Route: 048
     Dates: start: 2003
  7. VITAMIN B 12 [Concomitant]
     Indication: GASTRIC BYPASS
     Route: 060
     Dates: start: 2003
  8. ACIDOPHILUS [Concomitant]
     Indication: FUNGAL INFECTION
     Route: 048
  9. BIOTIN [Concomitant]
     Route: 048
     Dates: start: 2003
  10. VITAMIN D3 [Concomitant]
     Indication: THYROID DISORDER
     Route: 048
  11. CALCIUM CITRATE [Concomitant]
     Indication: NUTRITIONAL SUPPLEMENTATION
     Route: 048
     Dates: start: 2003
  12. METAMUCIL [Concomitant]
     Indication: IRRITABLE BOWEL SYNDROME
     Route: 048
     Dates: start: 2003
  13. LOSARTAN [Concomitant]
     Indication: HYPERTENSION
     Route: 048
  14. FLINTSTONES COMPLETE VITAMIN [Concomitant]
     Indication: VITAMIN SUPPLEMENTATION
     Route: 048
     Dates: start: 2003
  15. MAGNESIUM OXIDE [Concomitant]
     Route: 048
     Dates: start: 2013
  16. WARFARIN [Concomitant]
     Route: 048
  17. WARFARIN [Concomitant]
     Route: 048
  18. FLUTICASONE PROPIONATE [Concomitant]
     Route: 055
  19. NEBULIZER ALBUTEROL [Concomitant]
     Dosage: AS NEEDE INHALED
     Route: 055
  20. HYDROCODONE ACETAMINOPHEN [Concomitant]
     Indication: PAIN
     Dosage: 5-325 MG
     Route: 048
  21. CLOBETASOL [Concomitant]
     Dosage: 1 APPLICATION
     Route: 061
  22. ADVAIR DISKUS [Concomitant]
     Dosage: 250/50
     Route: 055
  23. BENADRYL [Concomitant]
     Indication: SLEEP DISORDER THERAPY
     Route: 065
  24. MELATONIN [Concomitant]
     Indication: SLEEP DISORDER THERAPY
     Route: 065

REACTIONS (2)
  - Syphilis [Not Recovered/Not Resolved]
  - Sinusitis [Not Recovered/Not Resolved]
